FAERS Safety Report 7092856-1 (Version None)
Quarter: 2010Q4

REPORT INFORMATION
  Report Type: 
  Country: None (occurrence: None)
  Receive Date: 20101110
  Receipt Date: 20101101
  Transmission Date: 20110411
  Serious: Yes (Other)
  Sender: FDA-Public Use
  Company Number: US-PFIZER INC-2010140097

PATIENT
  Sex: Female
  Weight: 85.275 kg

DRUGS (1)
  1. FLAGYL [Suspect]
     Indication: BACTERIAL INFECTION
     Dates: start: 19940301, end: 19940101

REACTIONS (1)
  - HYPERSENSITIVITY [None]
